FAERS Safety Report 4786023-1 (Version None)
Quarter: 2005Q3

REPORT INFORMATION
  Report Type: 
  Country: None (occurrence: None)
  Receive Date: 20050929
  Receipt Date: 20050923
  Transmission Date: 20060218
  Serious: Yes (Hospitalization)
  Sender: FDA-Public Use
  Company Number: T05-USA-03494-01

PATIENT
  Age: 54 Year
  Sex: Female
  Weight: 84.369 kg

DRUGS (3)
  1. MEMANTINE HCL [Suspect]
     Indication: BIPOLAR DISORDER
  2. MEMANTINE HCL [Suspect]
     Indication: MANIA
  3. RISPERIDONE [Concomitant]

REACTIONS (4)
  - CONTUSION [None]
  - FALL [None]
  - ILL-DEFINED DISORDER [None]
  - PRESSURE OF SPEECH [None]
